FAERS Safety Report 5868148-2 (Version None)
Quarter: 2008Q3

REPORT INFORMATION
  Report Type: 
  Country: None (occurrence: None)
  Receive Date: 20080902
  Receipt Date: 20080821
  Transmission Date: 20090109
  Serious: Yes (Hospitalization, Other)
  Sender: FDA-Public Use
  Company Number: US-PFIZER INC-2008055977

PATIENT
  Sex: Female
  Weight: 86.6 kg

DRUGS (17)
  1. LYRICA [Interacting]
     Indication: NECK PAIN
     Route: 048
     Dates: start: 20070504, end: 20071101
  2. LYRICA [Interacting]
     Indication: BACK PAIN
  3. DILANTIN [Suspect]
  4. ZITHROMAX [Suspect]
  5. TRAZODONE HYDROCHLORIDE [Interacting]
     Route: 048
  6. MORPHINE [Interacting]
     Indication: PAIN
  7. MS CONTIN [Interacting]
     Indication: PAIN
     Dates: start: 20070501, end: 20071101
  8. MORPHINE SULFATE [Interacting]
     Indication: PAIN
     Dates: start: 20070501, end: 20071101
  9. TOPAMAX [Concomitant]
  10. NEXIUM [Concomitant]
  11. MYCOLOG [Concomitant]
  12. ZETIA [Concomitant]
  13. DESYREL [Concomitant]
  14. AGGRENOX [Concomitant]
  15. CYMBALTA [Concomitant]
  16. DETROL LA [Concomitant]
  17. MULTI-VITAMINS [Concomitant]

REACTIONS (9)
  - DEHYDRATION [None]
  - DRUG HYPERSENSITIVITY [None]
  - DRUG INTERACTION [None]
  - INTENTIONAL DRUG MISUSE [None]
  - LETHARGY [None]
  - MENTAL STATUS CHANGES [None]
  - RENAL FAILURE ACUTE [None]
  - RHABDOMYOLYSIS [None]
  - SEDATION [None]
